FAERS Safety Report 4691436-2 (Version None)
Quarter: 2005Q2

REPORT INFORMATION
  Report Type: 
  Country: None (occurrence: None)
  Receive Date: 20050613
  Receipt Date: 20050323
  Transmission Date: 20051028
  Serious: Yes (Other)
  Sender: FDA-Public Use
  Company Number: S05-USA-01594-01

PATIENT
  Age: 21 Year
  Sex: Female

DRUGS (2)
  1. LEXAPRO [Suspect]
     Indication: DEPRESSION
     Dates: start: 20040701, end: 20040901
  2. LEXAPRO [Suspect]
     Indication: IRRITABLE BOWEL SYNDROME
     Dates: start: 20040701, end: 20040901

REACTIONS (5)
  - AGITATION [None]
  - DEPRESSION [None]
  - MENTAL IMPAIRMENT [None]
  - SUICIDAL IDEATION [None]
  - TINNITUS [None]
